FAERS Safety Report 7437711-X (Version None)
Quarter: 2011Q2

REPORT INFORMATION
  Report Type: 
  Country: None (occurrence: None)
  Receive Date: 20110421
  Receipt Date: 20110421
  Transmission Date: 20111010
  Serious: Yes (Hospitalization)
  Sender: FDA-Public Use
  Company Number: None

PATIENT
  Age: 78 Year
  Sex: Male
  Weight: 106 kg

DRUGS (2)
  1. VALSARTAN [Suspect]
     Indication: HYPERTENSION
     Dosage: 40 MG BID PO
     Route: 048
     Dates: start: 20100319, end: 20110419
  2. FOSINOPRIL SODIUM [Suspect]
     Indication: HYPERLIPIDAEMIA
     Dosage: 40 MG BID PO
     Route: 048
     Dates: start: 20080128, end: 20110419

REACTIONS (8)
  - BRADYCARDIA [None]
  - CARDIAC ARREST [None]
  - SYNCOPE [None]
  - BLOOD UREA INCREASED [None]
  - GRAND MAL CONVULSION [None]
  - HYPERKALAEMIA [None]
  - BLOOD CREATININE INCREASED [None]
  - ATRIOVENTRICULAR BLOCK [None]
